FAERS Safety Report 18376811 (Version 1)
Quarter: 2020Q4

REPORT INFORMATION
  Report Type: Spontaneous
  Country: US (occurrence: US)
  Receive Date: 20201013
  Receipt Date: 20201013
  Transmission Date: 20210114
  Serious: No
  Sender: FDA-Public Use
  Company Number: US-CURIUM-200500251

PATIENT
  Age: 64 Year
  Sex: Female

DRUGS (2)
  1. THALLOUS CHLORIDE TL 201 [Suspect]
     Active Substance: THALLOUS CHLORIDE TL-201
     Route: 042
  2. PERSANTINE [Concomitant]
     Active Substance: DIPYRIDAMOLE
     Dosage: NUMBER OF SEPARATE DOSAGES: 1
     Route: 042

REACTIONS (2)
  - Tremor [Recovered/Resolved]
  - Dyspnoea [Recovered/Resolved]
